FAERS Safety Report 8581353-X (Version None)
Quarter: 2012Q3

REPORT INFORMATION
  Report Type: 
  Country: None (occurrence: None)
  Receive Date: 20120809
  Receipt Date: 20120801
  Transmission Date: 20120928
  Serious: Yes (Hospitalization)
  Sender: FDA-Public Use
  Company Number: IT-JNJFOC-20120413315

PATIENT
  Sex: Female
  Weight: 32.2 kg

DRUGS (2)
  1. REMICADE [Suspect]
     Indication: CROHN'S DISEASE
     Route: 042
     Dates: start: 20120430
  2. REMICADE [Suspect]
     Route: 042
     Dates: start: 20120319

REACTIONS (1)
  - CROHN'S DISEASE [None]
